FAERS Safety Report 4970868-9 (Version None)
Quarter: 2006Q2

REPORT INFORMATION
  Report Type: 
  Country: None (occurrence: None)
  Receive Date: 20060406
  Receipt Date: 20060321
  Transmission Date: 20061013
  Serious: Yes (Hospitalization)
  Sender: FDA-Public Use
  Company Number: 230001K06SWE

PATIENT
  Age: 41 Year
  Sex: Female

DRUGS (2)
  1. REBIF [Suspect]
     Indication: MULTIPLE SCLEROSIS
     Dosage: 3 IN 1 WEEKS, SUBCUTANEOUS
     Route: 058
     Dates: start: 20010101
  2. GABAPENTIN [Concomitant]

REACTIONS (8)
  - DIFFICULTY IN WALKING [None]
  - INJECTION SITE DISCOLOURATION [None]
  - INJECTION SITE INDURATION [None]
  - INJECTION SITE INFECTION [None]
  - INJECTION SITE PAIN [None]
  - INSOMNIA [None]
  - PYREXIA [None]
  - SKIN WRINKLING [None]
